FAERS Safety Report 23703782 (Version 2)
Quarter: 2025Q3

REPORT INFORMATION
  Report Type: Spontaneous
  Country: VE (occurrence: VE)
  Receive Date: 20240403
  Receipt Date: 20250808
  Transmission Date: 20251020
  Serious: Yes (Other)
  Sender: PFIZER
  Company Number: VE-PFIZER INC-PV202400043130

PATIENT
  Age: 32 Year
  Sex: Female

DRUGS (1)
  1. BOSULIF [Suspect]
     Active Substance: BOSUTINIB MONOHYDRATE
     Indication: Chronic myeloid leukaemia

REACTIONS (5)
  - Road traffic accident [Recovering/Resolving]
  - Cervical vertebral fracture [Recovering/Resolving]
  - Mobility decreased [Recovering/Resolving]
  - Diarrhoea [Not Recovered/Not Resolved]
  - Gastrointestinal disorder [Not Recovered/Not Resolved]

NARRATIVE: CASE EVENT DATE: 20240326
